FAERS Safety Report 23874175 (Version 1)
Quarter: 2024Q2

REPORT INFORMATION
  Report Type: Spontaneous
  Country: US (occurrence: US)
  Receive Date: 20240520
  Receipt Date: 20240520
  Transmission Date: 20240715
  Serious: Yes (Other)
  Sender: FDA-Public Use
  Company Number: US-BAUSCH-BL-2024-006615

PATIENT
  Age: 68 Year
  Sex: Female

DRUGS (2)
  1. ANUSOL-HC [Suspect]
     Active Substance: HYDROCORTISONE
     Indication: Haemorrhoids
     Route: 065
  2. ANUSOL-HC [Suspect]
     Active Substance: HYDROCORTISONE
     Route: 065
     Dates: start: 202405

REACTIONS (6)
  - Haemorrhoidal haemorrhage [Unknown]
  - Condition aggravated [Unknown]
  - Product availability issue [Unknown]
  - Therapy interrupted [Unknown]
  - Product substitution issue [Unknown]
  - Insurance issue [Unknown]
